FAERS Safety Report 8806986 (Version 1)
Quarter: 2012Q4

REPORT INFORMATION
  Report Type: 
  Country: US (occurrence: US)
  Receive Date: 20120925
  Receipt Date: 20120925
  Transmission Date: 20130627
  Serious: Yes (Death)
  Sender: FDA-Public Use
  Company Number: US-ROCHE-1129900

PATIENT
  Sex: Female

DRUGS (5)
  1. HERCEPTIN [Suspect]
     Indication: BREAST CANCER
     Route: 065
     Dates: start: 19990202
  2. HERCEPTIN [Suspect]
     Indication: LUNG NEOPLASM MALIGNANT
     Dosage: second dose
     Route: 065
     Dates: start: 19990209
  3. HERCEPTIN [Suspect]
     Dosage: third dose
     Route: 065
     Dates: start: 19990216
  4. TAXOTERE [Concomitant]
  5. PACLITAXEL [Concomitant]

REACTIONS (1)
  - Death [Fatal]
